FAERS Safety Report 25812151 (Version 1)
Quarter: 2025Q3

REPORT INFORMATION
  Report Type: Spontaneous
  Country: US (occurrence: None)
  Receive Date: 20250916
  Receipt Date: 20250916
  Transmission Date: 20251021
  Serious: No
  Sender: FDA-CTU
  Company Number: None

PATIENT
  Age: 30 Year
  Sex: Female
  Weight: 64.8 kg

DRUGS (6)
  1. CLOTRIMAZOLE [Suspect]
     Active Substance: CLOTRIMAZOLE
     Indication: Vulvovaginal mycotic infection
  2. Lamotrigine ER 300mg nightly [Concomitant]
  3. Levetiracetam ER 750mg 4 tablets nightly [Concomitant]
  4. Folic acid 2mg nightly [Concomitant]
  5. Potassium citrate oral solution 5mL 3x daily [Concomitant]
  6. Women^s probiotic Loratadine Gut probiotic [Concomitant]

REACTIONS (1)
  - Product dispensing error [None]

NARRATIVE: CASE EVENT DATE: 20250916
